FAERS Safety Report 9933114 (Version 2)
Quarter: 2014Q2

REPORT INFORMATION
  Report Type: Spontaneous
  Country: FR (occurrence: FR)
  Receive Date: 20140228
  Receipt Date: 20140515
  Transmission Date: 20141212
  Serious: Yes (Other)
  Sender: FDA-Public Use
  Company Number: FR-ASTRAZENECA-2014SE12918

PATIENT
  Age: 25298 Day
  Sex: Male

DRUGS (14)
  1. INEXIUM [Suspect]
     Route: 048
     Dates: end: 20140131
  2. TEMZOLOMIDE SUN [Suspect]
     Indication: GLIOBLASTOMA
     Route: 048
     Dates: start: 20140129, end: 20140131
  3. TEMZOLOMIDE SUN [Suspect]
     Indication: GLIOBLASTOMA
     Route: 048
     Dates: start: 20140203
  4. AVASTIN [Suspect]
     Indication: GLIOBLASTOMA
     Route: 042
     Dates: start: 20140129, end: 20140129
  5. AVASTIN [Suspect]
     Indication: GLIOBLASTOMA
     Route: 042
     Dates: start: 20140212
  6. AVASTIN [Suspect]
     Indication: GLIOBLASTOMA
     Route: 042
     Dates: start: 20140226
  7. AVASTIN [Suspect]
     Indication: GLIOBLASTOMA
     Route: 042
     Dates: start: 20140312
  8. KEPPRA [Concomitant]
     Route: 048
  9. MEDROL [Concomitant]
     Route: 048
  10. XATRAL SR [Concomitant]
     Route: 048
  11. TAHOR [Concomitant]
     Route: 048
  12. DIFFU K [Concomitant]
     Route: 048
  13. MOTILIUM [Concomitant]
     Route: 048
     Dates: start: 20140128, end: 20140131
  14. ROCEPHINE [Concomitant]
     Route: 042
     Dates: start: 20140130, end: 20140201

REACTIONS (4)
  - Escherichia bacteraemia [Unknown]
  - Urinary tract infection [Unknown]
  - Thrombocytopenia [Recovered/Resolved]
  - Haemoglobin decreased [Unknown]
